FAERS Safety Report 12411935 (Version 1)
Quarter: 2016Q2

REPORT INFORMATION
  Report Type: Spontaneous
  Country: GB (occurrence: GB)
  Receive Date: 20160527
  Receipt Date: 20160527
  Transmission Date: 20160815
  Serious: Yes (Death)
  Sender: FDA-Public Use
  Company Number: GB-PFIZER INC-2016267755

PATIENT
  Age: 26 Year
  Sex: Male
  Weight: 72 kg

DRUGS (2)
  1. CRIZOTINIB [Suspect]
     Active Substance: CRIZOTINIB
     Indication: LUNG ADENOCARCINOMA
     Dosage: 250 MG, 1X/DAY
     Route: 048
     Dates: start: 20160205
  2. CRIZOTINIB [Suspect]
     Active Substance: CRIZOTINIB
     Dosage: 250 MG, 2X/DAY
     Route: 048
     Dates: end: 20160410

REACTIONS (2)
  - Thrombosis [Fatal]
  - Liver function test increased [Unknown]

NARRATIVE: CASE EVENT DATE: 20160321
